FAERS Safety Report 11048127 (Version 1)
Quarter: 2015Q2

REPORT INFORMATION
  Report Type: Spontaneous
  Country: US (occurrence: None)
  Receive Date: 20150417
  Receipt Date: 20150417
  Transmission Date: 20150821
  Serious: Yes (Disabling)
  Sender: FDA-Public Use
  Company Number: None

PATIENT
  Age: 47 Year
  Sex: Female
  Weight: 145.15 kg

DRUGS (9)
  1. TYLENOL [Concomitant]
     Active Substance: ACETAMINOPHEN
  2. HYDROCHLOROTHIAZIDE. [Concomitant]
     Active Substance: HYDROCHLOROTHIAZIDE
  3. VITAMIN D [Concomitant]
     Active Substance: CHOLECALCIFEROL
  4. MOTRIN [Concomitant]
     Active Substance: IBUPROFEN
  5. C-PAP MACHINE [Concomitant]
     Active Substance: DEVICE
  6. LOSARTAN [Concomitant]
     Active Substance: LOSARTAN
  7. MULTI VITAMIN [Concomitant]
     Active Substance: VITAMINS
  8. NORETHINDRONE ACETATE. [Suspect]
     Active Substance: NORETHINDRONE ACETATE
     Indication: BLOOD OESTROGEN INCREASED
     Dosage: 1 TWICE DAILY TAKEN BY MOUTH
     Route: 048
     Dates: start: 20131206, end: 20150205
  9. VITAMIN B12 [Concomitant]
     Active Substance: CYANOCOBALAMIN

REACTIONS (6)
  - Nausea [None]
  - Fatigue [None]
  - Liver disorder [None]
  - Abdominal pain upper [None]
  - Dyspepsia [None]
  - Hepatic enzyme increased [None]

NARRATIVE: CASE EVENT DATE: 20150203
